FAERS Safety Report 15067105 (Version 1)
Quarter: 2018Q2

REPORT INFORMATION
  Report Type: Spontaneous
  Country: FR (occurrence: FR)
  Receive Date: 20180626
  Receipt Date: 20180626
  Transmission Date: 20180711
  Serious: Yes (Hospitalization, Other)
  Sender: FDA-Public Use
  Company Number: FR-GLAXOSMITHKLINE-FR2018108541

PATIENT
  Age: 44 Year
  Sex: Female
  Weight: 83 kg

DRUGS (2)
  1. MOPRAL [Suspect]
     Active Substance: OMEPRAZOLE
     Indication: PRODUCT USED FOR UNKNOWN INDICATION
     Dosage: 20 MG, QD
     Route: 048
     Dates: start: 201707
  2. BENLYSTA [Suspect]
     Active Substance: BELIMUMAB
     Indication: SYSTEMIC LUPUS ERYTHEMATOSUS
     Dosage: 800 MG, QD
     Route: 041
     Dates: start: 20170704, end: 20180213

REACTIONS (1)
  - Colitis microscopic [Not Recovered/Not Resolved]

NARRATIVE: CASE EVENT DATE: 20170718
